FAERS Safety Report 12048070 (Version 2)
Quarter: 2017Q1

REPORT INFORMATION
  Report Type: Spontaneous
  Country: US (occurrence: US)
  Receive Date: 20160208
  Receipt Date: 20170131
  Transmission Date: 20170428
  Serious: No
  Sender: FDA-Public Use
  Company Number: US-ABBVIE-15P-163-1371867-00

PATIENT
  Sex: Female

DRUGS (2)
  1. METFORMIN [Concomitant]
     Active Substance: METFORMIN HYDROCHLORIDE
     Indication: PRODUCT USED FOR UNKNOWN INDICATION
     Dates: end: 20151117
  2. HUMIRA [Suspect]
     Active Substance: ADALIMUMAB
     Indication: PRODUCT USED FOR UNKNOWN INDICATION
     Route: 058
     Dates: start: 2009

REACTIONS (17)
  - Blood glucose increased [Recovered/Resolved]
  - Arthritis [Recovering/Resolving]
  - Arthralgia [Unknown]
  - Adverse drug reaction [Unknown]
  - Psoriasis [Recovering/Resolving]
  - Fatigue [Unknown]
  - Asthenia [Unknown]
  - Depression [Unknown]
  - Nausea [Unknown]
  - Crohn^s disease [Unknown]
  - Weight decreased [Unknown]
  - Malaise [Unknown]
  - Vomiting [Unknown]
  - Feeling abnormal [Unknown]
  - Joint destruction [Unknown]
  - Non-alcoholic fatty liver [Recovered/Resolved]
  - Abdominal distension [Unknown]
